FAERS Safety Report 8786506 (Version 1)
Quarter: 2012Q4

REPORT INFORMATION
  Report Type: Spontaneous
  Country: IT (occurrence: None)
  Receive Date: 20120905
  Receipt Date: 20120905
  Transmission Date: 20130627
  Serious: Yes (Hospitalization)
  Sender: FDA-Public Use
  Company Number: 1391727

PATIENT
  Age: 49 Year
  Sex: Female

DRUGS (7)
  1. CARBOPLATIN [Suspect]
     Dosage: (NOT OTHERWISE SPECIFIED)
     Route: 042
     Dates: start: 20120618, end: 20120618
  2. FERLIXIT [Concomitant]
  3. PACLITAXEL [Concomitant]
  4. ZOFRAN [Concomitant]
  5. TRIMETON [Concomitant]
  6. SOLDESAM [Concomitant]
  7. (RANI DI L) [Concomitant]

REACTIONS (4)
  - Muscle rigidity [None]
  - Hypersensitivity [None]
  - Bronchospasm [None]
  - Laryngeal oedema [None]
